FAERS Safety Report 4368866-1 (Version None)
Quarter: 2004Q2

REPORT INFORMATION
  Report Type: 
  Country: None (occurrence: None)
  Receive Date: 20040525
  Receipt Date: 20040510
  Transmission Date: 20050107
  Serious: Yes (Life-Threatening, Hospitalization)
  Sender: FDA-Public Use
  Company Number: 200403738

PATIENT
  Age: 21 Year
  Sex: Male

DRUGS (1)
  1. REGULAR STRENGTH TYLENOL PRODUCT (ACETAMINOPHEN) [Suspect]
     Indication: TOOTHACHE
     Dosage: 2600-3250MG OVER 12HRS
     Dates: start: 20040503, end: 20040504

REACTIONS (5)
  - ABDOMINAL PAIN UPPER [None]
  - DRUG LEVEL INCREASED [None]
  - HEPATOTOXICITY [None]
  - RENAL DISORDER [None]
  - VOMITING [None]
